FAERS Safety Report 20911608 (Version 8)
Quarter: 2022Q3

REPORT INFORMATION
  Report Type: Spontaneous
  Country: FR (occurrence: FR)
  Receive Date: 20220603
  Receipt Date: 20220727
  Transmission Date: 20221027
  Serious: Yes (Hospitalization, Other)
  Sender: FDA-Public Use
  Company Number: FR-ANIPHARMA-2022-FR-000098

PATIENT
  Age: 83 Year
  Sex: Female

DRUGS (12)
  1. CANDESARTAN CILEXETIL [Suspect]
     Active Substance: CANDESARTAN CILEXETIL
     Indication: Hypertension
     Dosage: 2 MG DAILY
     Route: 048
  2. PANTOPRAZOLE [Concomitant]
     Active Substance: PANTOPRAZOLE
     Dosage: 40 MG DAILY
     Route: 065
  3. XYLOCAINE [Concomitant]
     Active Substance: LIDOCAINE HYDROCHLORIDE
     Dosage: 10 MG/ML
     Route: 065
  4. CYTARABINE [Concomitant]
     Active Substance: CYTARABINE
     Dosage: 50 MG (MORNING AND EVENING FROM 5 DAYS), UNKNOWN
     Route: 065
  5. ROSUVASTATIN [Suspect]
     Active Substance: ROSUVASTATIN
     Dosage: 10 MG DAILY
     Route: 048
  6. VIDAZA [Suspect]
     Active Substance: AZACITIDINE
     Dosage: 130 MG DAILY / UNK, 2ND COURSE /  UNK, 3RD COURSE /  UNK, 4TH COURSE / UNK, 5TH COURSE / UNK, 6TH CO
     Route: 050
     Dates: start: 20200825, end: 20210511
  7. BROMAZEPAM [Suspect]
     Active Substance: BROMAZEPAM
     Dosage: 6 MG DAILY
     Route: 048
  8. PLAVIX [Suspect]
     Active Substance: CLOPIDOGREL BISULFATE
     Dosage: 75 MG DAILY
     Route: 048
  9. ONDANSETRON [Suspect]
     Active Substance: ONDANSETRON
     Dosage: 16 MG DAILY
     Route: 042
     Dates: start: 20200825, end: 20210618
  10. IVABRADINE [Suspect]
     Active Substance: IVABRADINE
     Dosage: 10 MG DAILY
     Route: 048
  11. LEVOTHYROXINE [Suspect]
     Active Substance: LEVOTHYROXINE
     Dosage: 75 UG/INHAL DAILY
     Route: 048
  12. VALACYCLOVIR HYDROCHLORIDE [Concomitant]
     Active Substance: VALACYCLOVIR HYDROCHLORIDE
     Dosage: 1 G DAILY
     Route: 065
     Dates: start: 20200817

REACTIONS (5)
  - Angioedema [Recovered/Resolved]
  - Bronchospasm [Recovered/Resolved]
  - Urticaria [Not Recovered/Not Resolved]
  - Rash [Unknown]
  - Agranulocytosis [Unknown]

NARRATIVE: CASE EVENT DATE: 20201005
